FAERS Safety Report 9010529 (Version 3)
Quarter: 2013Q1

REPORT INFORMATION
  Report Type: Report from Study
  Country: JP (occurrence: JP)
  Receive Date: 20130109
  Receipt Date: 20130130
  Transmission Date: 20140127
  Serious: Yes (Hospitalization)
  Sender: FDA-Public Use
  Company Number: JP-JNJFOC-20121201170

PATIENT
  Age: 62 Year
  Sex: Female
  Weight: 50 kg

DRUGS (22)
  1. REMINYL [Suspect]
     Indication: DEMENTIA ALZHEIMER^S TYPE
     Route: 048
     Dates: start: 20120313, end: 20120620
  2. MEMANTINE HYDROCHLORIDE [Concomitant]
     Indication: DEMENTIA ALZHEIMER^S TYPE
     Route: 048
     Dates: end: 20120620
  3. DEPAKENE [Concomitant]
     Indication: DEMENTIA ALZHEIMER^S TYPE
     Route: 048
     Dates: start: 20120327, end: 20120620
  4. DEPAKENE [Concomitant]
     Indication: DEMENTIA ALZHEIMER^S TYPE
     Route: 048
     Dates: start: 20120316, end: 20120320
  5. DEPAKENE [Concomitant]
     Indication: DEMENTIA ALZHEIMER^S TYPE
     Route: 048
     Dates: start: 20120312, end: 20120315
  6. DEPAKENE [Concomitant]
     Indication: DEMENTIA ALZHEIMER^S TYPE
     Route: 048
     Dates: start: 20120321, end: 20120326
  7. SEROQUEL [Concomitant]
     Indication: DEMENTIA ALZHEIMER^S TYPE
     Route: 048
     Dates: start: 20120312, end: 20120603
  8. SEROQUEL [Concomitant]
     Indication: DEMENTIA ALZHEIMER^S TYPE
     Route: 048
     Dates: start: 20120604, end: 20120620
  9. RESLIN [Concomitant]
     Indication: DEMENTIA ALZHEIMER^S TYPE
     Route: 048
     Dates: start: 20120403, end: 20120809
  10. RESLIN [Concomitant]
     Indication: DEMENTIA ALZHEIMER^S TYPE
     Route: 048
     Dates: start: 20120530, end: 20120620
  11. RESLIN [Concomitant]
     Indication: DEMENTIA ALZHEIMER^S TYPE
     Route: 048
     Dates: start: 20120410, end: 20120529
  12. LACTEC [Concomitant]
     Indication: COLLAGEN DISORDER
     Route: 041
     Dates: start: 20120524, end: 20120524
  13. LACTEC [Concomitant]
     Indication: COLLAGEN DISORDER
     Route: 041
     Dates: start: 20120519, end: 20120520
  14. CLARITH [Concomitant]
     Indication: PYREXIA
     Route: 048
     Dates: start: 20120519, end: 20120524
  15. CLARITH [Concomitant]
     Indication: COLLAGEN DISORDER
     Route: 048
     Dates: start: 20120519, end: 20120524
  16. GENINAX [Concomitant]
     Indication: PYREXIA
     Route: 048
     Dates: start: 20120521, end: 20120530
  17. CEFMETAZON [Concomitant]
     Indication: PYREXIA
     Route: 065
     Dates: start: 20120522, end: 20120523
  18. ROCEPHIN [Concomitant]
     Indication: PYREXIA
     Route: 042
     Dates: start: 20120523, end: 20120527
  19. LOXONIN [Concomitant]
     Indication: PYREXIA
     Route: 048
     Dates: start: 20120525
  20. SOLON [Concomitant]
     Indication: PROPHYLAXIS
     Route: 048
     Dates: start: 20120525
  21. TANNALBIN [Concomitant]
     Indication: DIARRHOEA
     Route: 048
     Dates: start: 20120615
  22. TANNALBIN [Concomitant]
     Indication: COLLAGEN DISORDER
     Route: 048
     Dates: start: 20120615

REACTIONS (4)
  - Pyrexia [Recovering/Resolving]
  - Diarrhoea [Unknown]
  - Eczema [Recovered/Resolved]
  - Dermatitis contact [Not Recovered/Not Resolved]
